FAERS Safety Report 5061309-4 (Version None)
Quarter: 2006Q3

REPORT INFORMATION
  Report Type: 
  Country: None (occurrence: None)
  Receive Date: 20060703
  Receipt Date: 20060324
  Transmission Date: 20061208
  Serious: No
  Sender: FDA-Public Use
  Company Number: 2006PV010852

PATIENT
  Age: 71 Year
  Sex: Male
  Weight: 117.9352 kg

DRUGS (6)
  1. SYMLIN [Suspect]
     Indication: DIABETES MELLITUS NON-INSULIN-DEPENDENT
     Dosage: SEE IMAGE
     Route: 058
     Dates: end: 20060101
  2. SYMLIN [Suspect]
     Indication: DIABETES MELLITUS NON-INSULIN-DEPENDENT
     Dosage: SEE IMAGE
     Route: 058
     Dates: start: 20060201
  3. LANTUS [Concomitant]
  4. HUMALOG MIX 50/50 [Concomitant]
  5. METFORMIN [Concomitant]
  6. ACTOPLUS MET [Concomitant]

REACTIONS (4)
  - DRUG INEFFECTIVE FOR UNAPPROVED INDICATION [None]
  - NAUSEA [None]
  - TREATMENT NONCOMPLIANCE [None]
  - VOMITING [None]
